FAERS Safety Report 4865276-5 (Version None)
Quarter: 2005Q4

REPORT INFORMATION
  Report Type: 
  Country: None (occurrence: None)
  Receive Date: 20051220
  Receipt Date: 20051207
  Transmission Date: 20060501
  Serious: Yes (Other)
  Sender: FDA-Public Use
  Company Number: 13081

PATIENT
  Age: 74 Year
  Sex: Female

DRUGS (3)
  1. METHOTREXATE SODIUM [Suspect]
     Indication: RHEUMATOID ARTHRITIS
     Dosage: 10 MG SC
     Route: 058
     Dates: start: 20011201, end: 20051101
  2. REMICADE [Suspect]
     Dates: start: 20020501, end: 20051021
  3. ACTONEL [Concomitant]

REACTIONS (3)
  - DISEASE RECURRENCE [None]
  - HEPATIC CYST [None]
  - PULMONARY TUBERCULOSIS [None]
